FAERS Safety Report 10021422 (Version 5)
Quarter: 2014Q4

REPORT INFORMATION
  Report Type: Spontaneous
  Country: US (occurrence: US)
  Receive Date: 20140319
  Receipt Date: 20141205
  Transmission Date: 20150528
  Serious: Yes (Hospitalization, Disabling, Other)
  Sender: FDA-Public Use
  Company Number: US-009507513-1203USA03494

PATIENT
  Sex: Male
  Weight: 90.7 kg

DRUGS (5)
  1. DIOVAN HCT [Suspect]
     Active Substance: HYDROCHLOROTHIAZIDE\VALSARTAN
     Indication: HYPERTENSION
     Dosage: 320/12.5 MG, QD
     Dates: end: 201306
  2. PROPECIA [Suspect]
     Active Substance: FINASTERIDE
     Indication: ALOPECIA
     Dosage: 1 MG, QD
     Route: 048
     Dates: start: 2003, end: 20070130
  3. PROPECIA [Suspect]
     Active Substance: FINASTERIDE
     Dosage: 1 MG, QD
     Route: 048
     Dates: start: 20070613, end: 201001
  4. FINASTERIDE. [Suspect]
     Active Substance: FINASTERIDE
     Indication: ALOPECIA
     Dosage: 5 MG, QD
     Route: 048
  5. FINASTERIDE. [Suspect]
     Active Substance: FINASTERIDE
     Indication: ALOPECIA
     Dosage: UNK
     Route: 048

REACTIONS (22)
  - Hypothyroidism [Unknown]
  - Folliculitis [Recovered/Resolved]
  - Pancreatitis acute [Unknown]
  - Folliculitis [Unknown]
  - Attention deficit/hyperactivity disorder [Unknown]
  - Alcohol abuse [Recovered/Resolved]
  - Depression [Not Recovered/Not Resolved]
  - Prostatitis [Unknown]
  - Inguinal hernia repair [Unknown]
  - Anogenital warts [Unknown]
  - Restless legs syndrome [Unknown]
  - Knee operation [Unknown]
  - Prostatic calcification [Unknown]
  - Hypogonadism male [Unknown]
  - Sexual dysfunction [Not Recovered/Not Resolved]
  - Hypertension [Unknown]
  - Erectile dysfunction [Unknown]
  - Hypertension [Unknown]
  - Pneumonia [Unknown]
  - Oropharyngeal pain [Unknown]
  - Erectile dysfunction [Unknown]
  - Cognitive disorder [Not Recovered/Not Resolved]

NARRATIVE: CASE EVENT DATE: 200706
